FAERS Safety Report 4742358-X (Version None)
Quarter: 2005Q3

REPORT INFORMATION
  Report Type: 
  Country: None (occurrence: None)
  Receive Date: 20050810
  Receipt Date: 20050810
  Transmission Date: 20060218
  Serious: Yes (Hospitalization)
  Sender: FDA-Public Use
  Company Number: None

PATIENT
  Sex: Male
  Weight: 147.8726 kg

DRUGS (10)
  1. CARVEDILOL [Suspect]
     Indication: CARDIOMYOPATHY
     Dosage: BID
  2. CARVEDILOL [Suspect]
     Indication: HYPERTENSION
     Dosage: BID
  3. ISOSORBIDE MONONITRATE [Suspect]
     Dosage: 30 MG DAILY
  4. LISINOPRIL [Suspect]
     Dosage: 40 MG DAILY
  5. SPIRONOLACTONE [Suspect]
     Dosage: 50 MG DAILY
  6. BUMETANIDE [Suspect]
     Dosage: 1 MG DAILY
     Dates: start: 20041118, end: 20050606
  7. . [Concomitant]
  8. . [Concomitant]
  9. . [Concomitant]
  10. . [Concomitant]

REACTIONS (2)
  - HYPOTENSION [None]
  - NAUSEA [None]
